FAERS Safety Report 6162695-4 (Version None)
Quarter: 2009Q2

REPORT INFORMATION
  Report Type: 
  Country: None (occurrence: None)
  Receive Date: 20090421
  Receipt Date: 20090415
  Transmission Date: 20091009
  Serious: Yes (Death)
  Sender: FDA-Public Use
  Company Number: US-GILEAD-2009-0021472

PATIENT
  Sex: Female
  Weight: 86.26 kg

DRUGS (17)
  1. LETAIRIS [Suspect]
     Indication: PULMONARY ARTERIAL HYPERTENSION
     Route: 048
     Dates: start: 20080825
  2. REVATIO [Concomitant]
  3. REMODULIN [Concomitant]
  4. COUMADIN [Concomitant]
  5. ASPIRIN [Concomitant]
  6. LISINOPRIL [Concomitant]
  7. METOLAZONE [Concomitant]
  8. ALBUTEROL [Concomitant]
  9. FLOVENT [Concomitant]
  10. BUMEX [Concomitant]
  11. HYDROXYUREA [Concomitant]
  12. VITAMIN D [Concomitant]
  13. PROCRIT [Concomitant]
  14. METHADONE HCL [Concomitant]
  15. FOLIC ACID [Concomitant]
  16. PHENERGAN [Concomitant]
  17. OXYCODONE -APAP 10-650 [Concomitant]

REACTIONS (1)
  - DEATH [None]
